FAERS Safety Report 4300280-7 (Version None)
Quarter: 2004Q1

REPORT INFORMATION
  Report Type: 
  Country: None (occurrence: None)
  Receive Date: 20040218
  Receipt Date: 20040218
  Transmission Date: 20041129
  Serious: Yes (Hospitalization)
  Sender: FDA-Public Use
  Company Number: None

PATIENT
  Age: 40 Year
  Sex: Male
  Weight: 84 kg

DRUGS (7)
  1. PEG-INTRON [Suspect]
     Indication: HEPATITIS C
     Dosage: 120 MCG QW SUBCUTANEOUS
     Route: 058
     Dates: start: 20030226, end: 20030822
  2. REBETOL [Suspect]
     Indication: HEPATITIS C
     Dosage: 1200 MG QD ORAL
     Route: 048
     Dates: start: 20030226, end: 20030829
  3. PERCOCET [Concomitant]
  4. VALIUM [Concomitant]
  5. VICODIN [Concomitant]
  6. TRAMADOL HCL [Concomitant]
  7. FENTANYL [Concomitant]

REACTIONS (2)
  - ACCIDENT AT WORK [None]
  - SPINAL LAMINECTOMY [None]
